FAERS Safety Report 11644659 (Version 2)
Quarter: 2015Q4

REPORT INFORMATION
  Report Type: Spontaneous
  Country: US (occurrence: US)
  Receive Date: 20151020
  Receipt Date: 20151102
  Transmission Date: 20160304
  Serious: Yes (Death)
  Sender: FDA-Public Use
  Company Number: US-LPDUSPRD-20150820

PATIENT
  Age: 58 Year
  Sex: Female

DRUGS (2)
  1. GRANISETRON HCL INJECTION, USP (3302-05) [Suspect]
     Active Substance: GRANISETRON HYDROCHLORIDE
     Dosage: DOSE NOT PROVIDED
     Route: 065
  2. SERTRALINE [Suspect]
     Active Substance: SERTRALINE HYDROCHLORIDE
     Dosage: DOSE NOT PROVIDED
     Route: 065

REACTIONS (2)
  - Posterior reversible encephalopathy syndrome [Fatal]
  - Serotonin syndrome [None]
